FAERS Safety Report 13340219 (Version 1)
Quarter: 2017Q1

REPORT INFORMATION
  Report Type: Spontaneous
  Country: US (occurrence: US)
  Receive Date: 20170316
  Receipt Date: 20170316
  Transmission Date: 20170428
  Serious: No
  Sender: FDA-Public Use
  Company Number: US-LEO PHARMA-300221

PATIENT
  Sex: Female

DRUGS (2)
  1. PICATO [Suspect]
     Active Substance: INGENOL MEBUTATE
     Indication: ACTINIC KERATOSIS
     Route: 061
  2. PICATO [Suspect]
     Active Substance: INGENOL MEBUTATE

REACTIONS (5)
  - Application site exfoliation [Not Recovered/Not Resolved]
  - Application site vesicles [Recovering/Resolving]
  - Application site pain [Recovering/Resolving]
  - Inappropriate schedule of drug administration [Unknown]
  - Incorrect drug administration duration [Unknown]
